FAERS Safety Report 5541586-3 (Version None)
Quarter: 2007Q4

REPORT INFORMATION
  Report Type: 
  Country: None (occurrence: None)
  Receive Date: 20071210
  Receipt Date: 20071206
  Transmission Date: 20080405
  Serious: Yes (Life-Threatening, Hospitalization)
  Sender: FDA-Public Use
  Company Number: PHBS2007JP20512

PATIENT
  Age: 78 Year
  Sex: Male

DRUGS (4)
  1. DIOVAN [Suspect]
     Indication: HYPERTENSION
     Dosage: 160 MG/DAY
     Route: 048
     Dates: end: 20071205
  2. TRICHLORMETHIAZIDE [Concomitant]
     Route: 048
  3. CALCIUM [Concomitant]
  4. BETA BLOCKING AGENTS [Concomitant]
     Route: 048

REACTIONS (4)
  - BRADYCARDIA [None]
  - CARDIAC PACEMAKER INSERTION [None]
  - HAEMODIALYSIS [None]
  - HYPERKALAEMIA [None]
